FAERS Safety Report 15279103 (Version 2)
Quarter: 2018Q3

REPORT INFORMATION
  Report Type: Report from Study
  Country: JP (occurrence: JP)
  Receive Date: 20180815
  Receipt Date: 20180816
  Transmission Date: 20181010
  Serious: Yes (Disabling)
  Sender: FDA-Public Use
  Company Number: JP-ROCHE-GNE309711

PATIENT
  Age: 84 Year
  Sex: Male
  Weight: 54 kg

DRUGS (23)
  1. RANIBIZUMAB. [Suspect]
     Active Substance: RANIBIZUMAB
     Route: 031
     Dates: start: 20091014, end: 20091014
  2. RANIBIZUMAB. [Suspect]
     Active Substance: RANIBIZUMAB
     Route: 031
     Dates: start: 20100107
  3. RANIBIZUMAB. [Suspect]
     Active Substance: RANIBIZUMAB
     Route: 031
     Dates: start: 20100623
  4. MEPTIN [Concomitant]
     Active Substance: PROCATEROL HYDROCHLORIDE
     Indication: EMPHYSEMA
     Route: 048
  5. RANIBIZUMAB. [Suspect]
     Active Substance: RANIBIZUMAB
     Route: 031
     Dates: start: 20090611
  6. RANIBIZUMAB. [Suspect]
     Active Substance: RANIBIZUMAB
     Route: 031
     Dates: start: 20091126
  7. KENACORT [Concomitant]
     Active Substance: TRIAMCINOLONE
     Indication: AGE-RELATED MACULAR DEGENERATION
     Route: 047
     Dates: start: 20101018
  8. RANIBIZUMAB. [Suspect]
     Active Substance: RANIBIZUMAB
     Route: 031
     Dates: start: 20091001
  9. CRAVIT [Concomitant]
     Active Substance: LEVOFLOXACIN
     Indication: PRODUCT USED FOR UNKNOWN INDICATION
     Dosage: UNK
     Route: 065
     Dates: start: 200905, end: 200911
  10. KIPRES [Concomitant]
     Active Substance: MONTELUKAST SODIUM
     Indication: EMPHYSEMA
     Route: 048
  11. RANIBIZUMAB. [Suspect]
     Active Substance: RANIBIZUMAB
     Route: 031
     Dates: start: 20090709
  12. ADONA (JAPAN) [Concomitant]
     Indication: AGE-RELATED MACULAR DEGENERATION
     Route: 048
     Dates: start: 20090306
  13. RANIBIZUMAB. [Suspect]
     Active Substance: RANIBIZUMAB
     Route: 031
     Dates: start: 20091028
  14. RANIBIZUMAB. [Suspect]
     Active Substance: RANIBIZUMAB
     Route: 031
     Dates: start: 20101013
  15. VISUDYNE [Suspect]
     Active Substance: VERTEPORFIN
     Indication: AGE-RELATED MACULAR DEGENERATION
     Route: 042
     Dates: start: 20090202
  16. MUCOSTA [Concomitant]
     Active Substance: REBAMIPIDE
     Indication: EMPHYSEMA
     Route: 048
  17. CLARITH [Concomitant]
     Active Substance: CLARITHROMYCIN
     Indication: EMPHYSEMA
     Route: 048
  18. RANIBIZUMAB. [Suspect]
     Active Substance: RANIBIZUMAB
     Indication: AGE-RELATED MACULAR DEGENERATION
     Route: 031
     Dates: start: 20090514
  19. VISUDYNE [Suspect]
     Active Substance: VERTEPORFIN
     Route: 042
     Dates: start: 20101013
  20. VIGAMOX [Concomitant]
     Active Substance: MOXIFLOXACIN HYDROCHLORIDE
     Indication: PRODUCT USED FOR UNKNOWN INDICATION
     Dosage: UNK
     Route: 065
     Dates: start: 201001, end: 201010
  21. VISUDYNE [Suspect]
     Active Substance: VERTEPORFIN
     Route: 042
     Dates: start: 20091014
  22. CILOSTAZOL. [Concomitant]
     Active Substance: CILOSTAZOL
     Indication: PRODUCT USED FOR UNKNOWN INDICATION
     Dosage: BRAND NAME FLENIED
     Route: 065
  23. FAMOSTAGINE [Concomitant]
     Active Substance: FAMOTIDINE
     Indication: EMPHYSEMA
     Route: 048

REACTIONS (5)
  - Retinal oedema [Recovered/Resolved]
  - Visual acuity reduced [Not Recovered/Not Resolved]
  - Haematoma [Recovered/Resolved with Sequelae]
  - Inappropriate schedule of drug administration [Unknown]
  - Retinal ischaemia [Recovering/Resolving]

NARRATIVE: CASE EVENT DATE: 20091028
